FAERS Safety Report 8458586-6 (Version None)
Quarter: 2012Q2

REPORT INFORMATION
  Report Type: 
  Country: None (occurrence: None)
  Receive Date: 20120622
  Receipt Date: 20120608
  Transmission Date: 20120825
  Serious: Yes (Hospitalization, Disabling)
  Sender: FDA-Public Use
  Company Number: DE-CELGENEUS-062-C5013-12051144

PATIENT
  Age: 65 Year
  Sex: Male
  Weight: 100 kg

DRUGS (14)
  1. LENALIDOMIDE [Suspect]
     Indication: PROSTATE CANCER
     Dosage: 25 MILLIGRAM
     Route: 048
     Dates: start: 20110803, end: 20110823
  2. DOCETAXEL [Suspect]
     Dosage: 150 MICROGRAM
     Route: 065
     Dates: start: 20120321, end: 20120411
  3. ASPIRIN [Concomitant]
     Indication: ANTICOAGULANT THERAPY
     Dosage: 100 MILLIGRAM
     Route: 048
     Dates: start: 20110820
  4. SIMVASTATIN [Concomitant]
     Dosage: 40 MILLIGRAM
     Route: 048
     Dates: start: 20110826
  5. PREDNISONE TAB [Suspect]
     Indication: PROSTATE CANCER
     Dosage: 20 MILLIGRAM
     Route: 065
     Dates: start: 20110803, end: 20110823
  6. PREDNISONE TAB [Suspect]
     Dosage: 20 MILLIGRAM
     Route: 065
     Dates: start: 20120321, end: 20120411
  7. DOCETAXEL [Suspect]
     Indication: PROSTATE CANCER
     Dosage: 150 MICROGRAM
     Route: 065
     Dates: start: 20110803, end: 20110823
  8. VALSARTAN/PROVAS [Concomitant]
     Indication: HYPERTENSION
     Dosage: 80 MILLIGRAM
     Route: 048
     Dates: start: 20110826
  9. LHRH ANALOGON [Concomitant]
     Indication: PROSTATE CANCER
     Route: 058
     Dates: start: 20110602
  10. VITAMIN B-12 [Concomitant]
     Route: 048
     Dates: start: 20110831
  11. DEXAMETHASONE [Concomitant]
     Indication: PROPHYLAXIS
     Dosage: 64 MILLIGRAM
     Route: 048
     Dates: start: 20110803
  12. LENALIDOMIDE [Suspect]
     Dosage: 25 MILLIGRAM
     Route: 048
     Dates: end: 20111001
  13. AMLODIPINE [Concomitant]
     Indication: HYPERTENSION
     Dosage: 5 MILLIGRAM
     Route: 048
     Dates: start: 20050101
  14. ZOMETA [Concomitant]
     Route: 041
     Dates: start: 20100301

REACTIONS (6)
  - CAROTID ARTERY STENOSIS [None]
  - DYSPNOEA [None]
  - ANAEMIA [None]
  - THROMBOTIC THROMBOCYTOPENIC PURPURA [None]
  - DILATATION VENTRICULAR [None]
  - TRANSIENT ISCHAEMIC ATTACK [None]
